FAERS Safety Report 9763935 (Version 1)
Quarter: 2013Q4

REPORT INFORMATION
  Report Type: Spontaneous
  Country: US (occurrence: US)
  Receive Date: 20131216
  Receipt Date: 20131216
  Transmission Date: 20140711
  Serious: No
  Sender: FDA-Public Use
  Company Number: US-BIOGENIDEC-2013BI110833

PATIENT
  Age: 45 Year
  Sex: Female

DRUGS (17)
  1. TECFIDERA [Suspect]
     Indication: MULTIPLE SCLEROSIS
     Route: 048
     Dates: start: 201310
  2. TECFIDERA [Suspect]
     Indication: MULTIPLE SCLEROSIS
     Route: 048
  3. ACYCLOVIR [Concomitant]
  4. CELEBREX [Concomitant]
  5. LYRICA [Concomitant]
  6. TRAMADOL HCL [Concomitant]
  7. AMITRIPTYLINE HCL [Concomitant]
  8. BACLOFEN [Concomitant]
  9. LOVAZA [Concomitant]
  10. OMEPRAZOLE [Concomitant]
  11. WARFARIN SODIUM [Concomitant]
  12. OXYBUTYNIN [Concomitant]
  13. NUVIGIL [Concomitant]
  14. CRANBERRY [Concomitant]
  15. ACIDOPHILUS PROBIOTIC [Concomitant]
  16. DIGESTIVE PROBIOTIC [Concomitant]
  17. VITAMIN D3 [Concomitant]

REACTIONS (4)
  - Impaired gastric emptying [Unknown]
  - Flushing [Unknown]
  - Nausea [Unknown]
  - Diarrhoea [Unknown]
